FAERS Safety Report 7398689-0 (Version None)
Quarter: 2011Q2

REPORT INFORMATION
  Report Type: 
  Country: None (occurrence: None)
  Receive Date: 20110407
  Receipt Date: 20110330
  Transmission Date: 20111010
  Serious: No
  Sender: FDA-Public Use
  Company Number: US-BIOGENIDEC-2011BI012432

PATIENT
  Sex: Female

DRUGS (1)
  1. TYSABRI [Suspect]
     Indication: MULTIPLE SCLEROSIS
     Route: 042
     Dates: start: 20080516, end: 20100701

REACTIONS (6)
  - FACIAL BONES FRACTURE [None]
  - CENTRAL NERVOUS SYSTEM LESION [None]
  - INTERVERTEBRAL DISC PROTRUSION [None]
  - NASAL OPERATION [None]
  - CONCUSSION [None]
  - ROAD TRAFFIC ACCIDENT [None]
